FAERS Safety Report 4824946-5 (Version None)
Quarter: 2005Q4

REPORT INFORMATION
  Report Type: 
  Country: None (occurrence: None)
  Receive Date: 20051110
  Receipt Date: 20051101
  Transmission Date: 20060501
  Serious: Yes (Other)
  Sender: FDA-Public Use
  Company Number: JP-MERCK-0511USA00663

PATIENT
  Age: 46 Year
  Sex: Male
  Weight: 70 kg

DRUGS (7)
  1. PRIMAXIN [Suspect]
     Indication: ENDOCARDITIS
     Route: 041
     Dates: start: 20050908, end: 20050927
  2. PRIMAXIN [Suspect]
     Route: 041
     Dates: start: 20050905, end: 20050907
  3. VANCOMYCIN [Concomitant]
     Route: 042
     Dates: start: 20050905
  4. BUFFERIN [Concomitant]
     Route: 048
  5. ARTIST [Concomitant]
     Route: 048
  6. LIPITOR [Concomitant]
     Route: 048
  7. LAFUTIDINE [Concomitant]
     Route: 048

REACTIONS (1)
  - STATUS EPILEPTICUS [None]
